FAERS Safety Report 5554888-1 (Version None)
Quarter: 2007Q4

REPORT INFORMATION
  Report Type: 
  Country: None (occurrence: None)
  Receive Date: 20071213
  Receipt Date: 20070806
  Transmission Date: 20080405
  Serious: No
  Sender: FDA-Public Use
  Company Number: US-AMGEN-KDL231882

PATIENT
  Sex: Male

DRUGS (2)
  1. ENBREL [Suspect]
     Indication: ANKYLOSING SPONDYLITIS
     Route: 058
     Dates: start: 20070506
  2. SULFASALAZINE [Concomitant]
     Dates: start: 20070101

REACTIONS (7)
  - ABDOMINAL PAIN UPPER [None]
  - ARTHRALGIA [None]
  - BONE PAIN [None]
  - INJECTION SITE HAEMORRHAGE [None]
  - LYMPH NODE CALCIFICATION [None]
  - NECK PAIN [None]
  - RASH [None]
